FAERS Safety Report 9738515 (Version 2)
Quarter: 2013Q4

REPORT INFORMATION
  Report Type: Report from Study
  Country: MX (occurrence: MX)
  Receive Date: 20131208
  Receipt Date: 20131224
  Transmission Date: 20140711
  Serious: Yes (Other)
  Sender: FDA-Public Use
  Company Number: PHHY2012MX053988

PATIENT
  Age: 62 Year
  Sex: Male

DRUGS (4)
  1. CO-DIOVAN [Suspect]
     Indication: HYPERTENSION
     Dosage: 1 TABLET (320MG VALSARTAN/12.5 MG HCT) PER DAY
     Route: 048
     Dates: start: 201203, end: 20120620
  2. FUROSEMIDE [Concomitant]
     Dosage: 1 TABLET PER DAY
     Dates: start: 201203, end: 201206
  3. METFORMIN [Concomitant]
     Dosage: 1 TABLET PER DAY
     Dates: end: 201206
  4. GLIMEPIRIDE [Concomitant]
     Dosage: 1 TABLET PER DAY
     Dates: end: 201206

REACTIONS (3)
  - Glaucoma [Not Recovered/Not Resolved]
  - Intraocular pressure increased [Not Recovered/Not Resolved]
  - Hypertension [Not Recovered/Not Resolved]
